FAERS Safety Report 15499101 (Version 3)
Quarter: 2019Q3

REPORT INFORMATION
  Report Type: Spontaneous
  Country: US (occurrence: US)
  Receive Date: 20181015
  Receipt Date: 20190930
  Transmission Date: 20191004
  Serious: Yes (Hospitalization, Other)
  Sender: FDA-Public Use
  Company Number: US-PFIZER INC-2018413765

PATIENT
  Age: 59 Year
  Sex: Female

DRUGS (2)
  1. IBRANCE [Suspect]
     Active Substance: PALBOCICLIB
     Dosage: 125 MG, CYCLIC (ONCE DAILY FOR 21 DAYS, THEN 7 DAYS OFF)
     Route: 048
  2. IBRANCE [Suspect]
     Active Substance: PALBOCICLIB
     Dosage: 100 MG CYCLIC (DAILY FOR 21 DAYS THEN 7 DAYS OFF)
     Route: 048

REACTIONS (5)
  - Ageusia [Unknown]
  - White blood cell count decreased [Unknown]
  - Infection [Unknown]
  - Arthropod bite [Unknown]
  - Thrombosis [Unknown]
